FAERS Safety Report 7051418-2 (Version None)
Quarter: 2010Q4

REPORT INFORMATION
  Report Type: 
  Country: None (occurrence: None)
  Receive Date: 20101019
  Receipt Date: 20101008
  Transmission Date: 20110411
  Serious: Yes (Hospitalization)
  Sender: FDA-Public Use
  Company Number: A0790514A

PATIENT
  Age: 73 Year
  Sex: Male

DRUGS (1)
  1. AVANDIA [Suspect]
     Dosage: 4MG PER DAY
     Route: 048
     Dates: start: 20031101, end: 20070801

REACTIONS (4)
  - AORTIC STENOSIS [None]
  - CARDIAC ASSISTANCE DEVICE USER [None]
  - CORONARY ARTERY BYPASS [None]
  - SURGERY [None]
